FAERS Safety Report 6588313-9 (Version None)
Quarter: 2010Q1

REPORT INFORMATION
  Report Type: 
  Country: None (occurrence: None)
  Receive Date: 20100218
  Receipt Date: 20100211
  Transmission Date: 20100710
  Serious: Yes (Hospitalization)
  Sender: FDA-Public Use
  Company Number: US-PERRIGO-10US007064

PATIENT
  Sex: Female

DRUGS (1)
  1. DOCUSATE SODIUM 100 MG 486 [Suspect]
     Indication: CONSTIPATION
     Dosage: 100 MG, PRN
     Route: 048
     Dates: end: 20100204

REACTIONS (4)
  - COUGH [None]
  - HYPERSENSITIVITY [None]
  - URTICARIA [None]
  - WHEEZING [None]
